FAERS Safety Report 6982120-0 (Version None)
Quarter: 2010Q3

REPORT INFORMATION
  Report Type: 
  Country: None (occurrence: None)
  Receive Date: 20100914
  Receipt Date: 20091214
  Transmission Date: 20110219
  Serious: No
  Sender: FDA-Public Use
  Company Number: US-PFIZER INC-2009293287

PATIENT
  Sex: Male

DRUGS (5)
  1. LYRICA [Suspect]
     Indication: NEURALGIA
     Dosage: 100 MG, 3X/DAY
     Route: 048
     Dates: start: 20080901, end: 20091101
  2. HYZAAR [Concomitant]
     Dosage: UNK
  3. DILTIAZEM [Concomitant]
     Dosage: UNK
  4. CELEBREX [Concomitant]
     Dosage: UNK
  5. METOPROLOL SUCCINATE [Concomitant]
     Dosage: UNK
     Dates: end: 20090101

REACTIONS (2)
  - PARAESTHESIA [None]
  - PRURITUS GENERALISED [None]
